FAERS Safety Report 19273406 (Version 1)
Quarter: 2021Q2

REPORT INFORMATION
  Report Type: Spontaneous
  Country: GB (occurrence: GB)
  Receive Date: 20210519
  Receipt Date: 20210519
  Transmission Date: 20210717
  Serious: Yes (Life-Threatening, Other)
  Sender: FDA-Public Use
  Company Number: GB-TEVA-2021-GB-1911878

PATIENT
  Age: 34 Year
  Sex: Female
  Weight: 110 kg

DRUGS (1)
  1. ONDANESTRON HYDROCHLORIDE [Suspect]
     Active Substance: ONDANSETRON HYDROCHLORIDE
     Indication: NAUSEA
     Dosage: 24 MILLIGRAM DAILY;
     Route: 030
     Dates: start: 20210505

REACTIONS (1)
  - Electrocardiogram QT prolonged [Recovering/Resolving]
